FAERS Safety Report 5341103-7 (Version None)
Quarter: 2007Q2

REPORT INFORMATION
  Report Type: 
  Country: None (occurrence: None)
  Receive Date: 20070405
  Receipt Date: 20061024
  Transmission Date: 20071010
  Serious: Yes (Other)
  Sender: FDA-Public Use
  Company Number: 2006-05588

PATIENT
  Age: 51 Year
  Sex: Female

DRUGS (1)
  1. FERRLECIT [Suspect]
     Indication: ANAEMIA
     Dosage: (4 TREATMENTS), INTRAVENOUS
     Route: 042
     Dates: start: 20061023, end: 20061023

REACTIONS (2)
  - CONVULSION [None]
  - DYSPNOEA [None]
